FAERS Safety Report 15729217 (Version 1)
Quarter: 2018Q4

REPORT INFORMATION
  Report Type: Spontaneous
  Country: US (occurrence: US)
  Receive Date: 20181215
  Receipt Date: 20181215
  Transmission Date: 20190205
  Serious: Yes (Life-Threatening, Hospitalization, Other)
  Sender: FDA-Public Use
  Company Number: None

PATIENT
  Age: 35 Year
  Sex: Female
  Weight: 51.75 kg

DRUGS (1)
  1. SERTRALINE [Suspect]
     Active Substance: SERTRALINE HYDROCHLORIDE
     Indication: ANXIETY
     Dosage: ?          QUANTITY:.5 TABLET(S);?
     Route: 048
     Dates: start: 20181206, end: 20181206

REACTIONS (5)
  - Dehydration [None]
  - Dizziness [None]
  - Gastric disorder [None]
  - Tremor [None]
  - Altered state of consciousness [None]

NARRATIVE: CASE EVENT DATE: 20181212
